FAERS Safety Report 9690258 (Version 2)
Quarter: 2014Q1

REPORT INFORMATION
  Report Type: Spontaneous
  Country: ES (occurrence: ES)
  Receive Date: 20131115
  Receipt Date: 20140314
  Transmission Date: 20141002
  Serious: Yes (Death, Hospitalization)
  Sender: FDA-Public Use
  Company Number: ES-ELI_LILLY_AND_COMPANY-ES201311002578

PATIENT
  Age: 76 Year
  Sex: Female

DRUGS (6)
  1. CYMBALTA [Suspect]
     Indication: PRODUCT USED FOR UNKNOWN INDICATION
     Dosage: 60 MG, EACH MORNING
     Route: 065
     Dates: start: 20131008
  2. CYMBALTA [Interacting]
     Dosage: 60 MG, BID
     Route: 065
  3. SERTRALIN /01011401/ [Interacting]
     Indication: PRODUCT USED FOR UNKNOWN INDICATION
     Dosage: 100 MG, EACH EVENING
     Route: 065
  4. LORAZEPAM [Interacting]
     Indication: PRODUCT USED FOR UNKNOWN INDICATION
     Dosage: 1 MG, EACH EVENING
     Route: 065
  5. ABILIFY [Interacting]
     Indication: PRODUCT USED FOR UNKNOWN INDICATION
     Dosage: 1 DF, QD
     Route: 065
  6. SEROQUEL [Interacting]
     Indication: PRODUCT USED FOR UNKNOWN INDICATION
     Dosage: 100 DF, EACH EVENING
     Route: 065

REACTIONS (4)
  - Neuroleptic malignant syndrome [Fatal]
  - Depression [Unknown]
  - Decreased appetite [Unknown]
  - Drug interaction [Not Recovered/Not Resolved]
